FAERS Safety Report 19827650 (Version 3)
Quarter: 2022Q2

REPORT INFORMATION
  Report Type: Spontaneous
  Country: US (occurrence: None)
  Receive Date: 20210914
  Receipt Date: 20220524
  Transmission Date: 20220720
  Serious: Yes (Other)
  Sender: FDA-Public Use
  Company Number: 2021A721842

PATIENT
  Age: 63 Year
  Sex: Female
  Weight: 104.3 kg

DRUGS (48)
  1. NEXIUM [Suspect]
     Active Substance: ESOMEPRAZOLE MAGNESIUM
     Indication: Gastrooesophageal reflux disease
     Route: 048
     Dates: start: 2007, end: 2018
  2. NEXIUM [Suspect]
     Active Substance: ESOMEPRAZOLE MAGNESIUM
     Indication: Gastrooesophageal reflux disease
     Route: 048
     Dates: start: 2001, end: 2008
  3. NEXIUM [Suspect]
     Active Substance: ESOMEPRAZOLE MAGNESIUM
     Indication: Gastrooesophageal reflux disease
     Dosage: GENERIC
     Route: 065
  4. NEXIUM [Suspect]
     Active Substance: ESOMEPRAZOLE MAGNESIUM
     Indication: Gastrooesophageal reflux disease
     Route: 048
     Dates: start: 2001, end: 2018
  5. NEXIUM [Suspect]
     Active Substance: ESOMEPRAZOLE MAGNESIUM
     Indication: Gastrooesophageal reflux disease
     Dosage: GENERIC
     Route: 065
  6. PRILOSEC [Suspect]
     Active Substance: OMEPRAZOLE MAGNESIUM
     Indication: Gastrooesophageal reflux disease
     Route: 048
     Dates: start: 2007, end: 2018
  7. PRILOSEC [Suspect]
     Active Substance: OMEPRAZOLE MAGNESIUM
     Indication: Gastrooesophageal reflux disease
     Route: 048
     Dates: start: 2000
  8. PRILOSEC [Suspect]
     Active Substance: OMEPRAZOLE MAGNESIUM
     Indication: Gastrooesophageal reflux disease
     Dosage: GENERIC
     Route: 065
     Dates: start: 2014, end: 2017
  9. PROTONIX [Suspect]
     Active Substance: PANTOPRAZOLE SODIUM
     Indication: Gastrooesophageal reflux disease
     Dosage: GENERIC
     Route: 065
     Dates: start: 2014, end: 2016
  10. LASIX [Concomitant]
     Active Substance: FUROSEMIDE
     Indication: Oedema
  11. HYDRALAZINE [Concomitant]
     Active Substance: HYDRALAZINE HYDROCHLORIDE
     Indication: Hypertension
  12. PRINIVIL [Concomitant]
     Active Substance: LISINOPRIL
     Indication: Hypertension
  13. TRAMADOL [Concomitant]
     Active Substance: TRAMADOL
     Indication: Pain
  14. SIMVASTATIN [Concomitant]
     Active Substance: SIMVASTATIN
     Indication: Blood cholesterol increased
  15. LISINOPRIL [Concomitant]
     Active Substance: LISINOPRIL
     Indication: Hypertension
  16. AMITRIPTYLINE [Concomitant]
     Active Substance: AMITRIPTYLINE
     Indication: Depression
  17. AZITHROMYCIN [Concomitant]
     Active Substance: AZITHROMYCIN
     Indication: Infection
  18. NAPROXEN [Concomitant]
     Active Substance: NAPROXEN
     Indication: Pain
  19. TYLENOL [Concomitant]
     Active Substance: ACETAMINOPHEN
     Indication: Pain
  20. ASPIRIN [Concomitant]
     Active Substance: ASPIRIN
     Indication: Pain
  21. VITAMIN B12 NOS/(6S)-5-METHYLTETRAHYDROFOLATE/RIBOFLAVIN/BETAINE/PYRID [Concomitant]
     Indication: Energy increased
     Dosage: DAILY
  22. COREG [Concomitant]
     Active Substance: CARVEDILOL
  23. ALBUTEROL [Concomitant]
     Active Substance: ALBUTEROL
  24. ALLOPURINOL [Concomitant]
     Active Substance: ALLOPURINOL
  25. FLOVENT [Concomitant]
     Active Substance: FLUTICASONE PROPIONATE
  26. IMDUR [Concomitant]
     Active Substance: ISOSORBIDE MONONITRATE
  27. NYSTATIN [Concomitant]
     Active Substance: NYSTATIN
  28. LEVAQUIN [Concomitant]
     Active Substance: LEVOFLOXACIN
  29. POTASSIUM CHLORIDE [Concomitant]
     Active Substance: POTASSIUM CHLORIDE
  30. GLYBURIDE [Concomitant]
     Active Substance: GLYBURIDE
  31. ZETIA [Concomitant]
     Active Substance: EZETIMIBE
  32. PRAVACHOL [Concomitant]
     Active Substance: PRAVASTATIN SODIUM
  33. COLCHICINE [Concomitant]
     Active Substance: COLCHICINE
  34. FLEXERIL [Concomitant]
     Active Substance: CYCLOBENZAPRINE HYDROCHLORIDE
  35. OXYCODONE [Concomitant]
     Active Substance: OXYCODONE
  36. FERROUS SULFATE [Concomitant]
     Active Substance: FERROUS SULFATE
  37. DULOXETINE [Concomitant]
     Active Substance: DULOXETINE
  38. POLYETHYLENE GLYCOL [Concomitant]
     Active Substance: POLYETHYLENE GLYCOL
  39. SERTRALINE [Concomitant]
     Active Substance: SERTRALINE HYDROCHLORIDE
  40. DOCUSATE [Concomitant]
     Active Substance: DOCUSATE
  41. GLIPIZIDE [Concomitant]
     Active Substance: GLIPIZIDE
  42. GUAIFENESIN [Concomitant]
     Active Substance: GUAIFENESIN
  43. ONDANSETRON [Concomitant]
     Active Substance: ONDANSETRON
  44. THEOBROMA CACAO/GLUTAMIC ACID/CRATAEGUS LAEVIGATA FRUIT/TRAZODONE HYDR [Concomitant]
  45. GABAPENTIN [Concomitant]
     Active Substance: GABAPENTIN
  46. CEFDINIR [Concomitant]
     Active Substance: CEFDINIR
  47. TIZANIDINE [Concomitant]
     Active Substance: TIZANIDINE
  48. METOLAZONE [Concomitant]
     Active Substance: METOLAZONE

REACTIONS (6)
  - Acute kidney injury [Not Recovered/Not Resolved]
  - Chronic kidney disease [Not Recovered/Not Resolved]
  - Renal failure [Unknown]
  - End stage renal disease [Unknown]
  - Renal tubular necrosis [Unknown]
  - Gastrooesophageal reflux disease [Not Recovered/Not Resolved]

NARRATIVE: CASE EVENT DATE: 20040101
